FAERS Safety Report 17257549 (Version 2)
Quarter: 2020Q3

REPORT INFORMATION
  Report Type: Spontaneous
  Country: AU (occurrence: AU)
  Receive Date: 20200110
  Receipt Date: 20200827
  Transmission Date: 20201102
  Serious: Yes (Hospitalization, Other)
  Sender: FDA-Public Use
  Company Number: AU-BAXTER-2020BAX000581

PATIENT
  Age: 44 Year
  Sex: Female

DRUGS (13)
  1. ETOPOSIDE. [Concomitant]
     Active Substance: ETOPOSIDE
     Indication: PRODUCT USED FOR UNKNOWN INDICATION
     Route: 065
  2. DOXIL [Suspect]
     Active Substance: DOXORUBICIN HYDROCHLORIDE
     Indication: LARGE GRANULAR LYMPHOCYTOSIS
     Route: 065
  3. CYTARABINE. [Suspect]
     Active Substance: CYTARABINE
     Indication: LARGE GRANULAR LYMPHOCYTOSIS
     Dosage: 1.5 G/M2
     Route: 065
  4. CYTARABINE. [Suspect]
     Active Substance: CYTARABINE
     Indication: HEPATOSPLENIC T-CELL LYMPHOMA
     Dosage: 3 G/M2
     Route: 065
  5. GEMCITABINE HYDROCHLORIDE. [Suspect]
     Active Substance: GEMCITABINE HYDROCHLORIDE
     Indication: PRODUCT USED FOR UNKNOWN INDICATION
     Route: 065
  6. VINORELBINE [Suspect]
     Active Substance: VINORELBINE TARTRATE
     Indication: PRODUCT USED FOR UNKNOWN INDICATION
     Route: 065
  7. PRALATREXATE [Concomitant]
     Active Substance: PRALATREXATE
     Indication: PRODUCT USED FOR UNKNOWN INDICATION
     Route: 065
  8. VINCRISTINE SULFATE. [Suspect]
     Active Substance: VINCRISTINE SULFATE
     Indication: LARGE GRANULAR LYMPHOCYTOSIS
     Route: 065
  9. DEXAMETHASONE SODIUM PHOSPHATE. [Suspect]
     Active Substance: DEXAMETHASONE SODIUM PHOSPHATE
     Indication: LARGE GRANULAR LYMPHOCYTOSIS
     Route: 065
  10. IFOSFAMIDE. [Concomitant]
     Active Substance: IFOSFAMIDE
     Indication: PRODUCT USED FOR UNKNOWN INDICATION
     Route: 065
  11. CYCLOPHOSPHAMIDE. [Suspect]
     Active Substance: CYCLOPHOSPHAMIDE
     Indication: LARGE GRANULAR LYMPHOCYTOSIS
     Route: 065
  12. METHOTREXATE. [Suspect]
     Active Substance: METHOTREXATE
     Indication: LARGE GRANULAR LYMPHOCYTOSIS
     Route: 065
  13. CARBOPLATIN. [Concomitant]
     Active Substance: CARBOPLATIN
     Indication: PRODUCT USED FOR UNKNOWN INDICATION
     Route: 065

REACTIONS (10)
  - Extradural haematoma [Unknown]
  - Disease progression [Unknown]
  - Toxicity to various agents [Unknown]
  - Quadriplegia [Unknown]
  - Generalised tonic-clonic seizure [Unknown]
  - Postictal state [Unknown]
  - Myelopathy [Unknown]
  - Neutropenic sepsis [Unknown]
  - Paralysis [Unknown]
  - Spinal cord compression [Unknown]
